FAERS Safety Report 24775009 (Version 2)
Quarter: 2024Q4

REPORT INFORMATION
  Report Type: Spontaneous
  Country: US (occurrence: US)
  Receive Date: 20241226
  Receipt Date: 20241227
  Transmission Date: 20250115
  Serious: Yes (Death, Other)
  Sender: RANBAXY
  Company Number: US-SUN PHARMACEUTICAL INDUSTRIES LTD-2024R1-486000

PATIENT
  Age: 52 Year
  Sex: Male

DRUGS (6)
  1. DEXAMETHASONE [Suspect]
     Active Substance: DEXAMETHASONE
     Indication: Acute promyelocytic leukaemia
     Dosage: UNK
     Route: 065
  2. DEXAMETHASONE [Suspect]
     Active Substance: DEXAMETHASONE
     Indication: Chronic lymphocytic leukaemia
  3. HYDROXYUREA [Suspect]
     Active Substance: HYDROXYUREA
     Indication: Acute promyelocytic leukaemia
     Dosage: UNK
     Route: 065
  4. HYDROXYUREA [Suspect]
     Active Substance: HYDROXYUREA
     Indication: Chronic lymphocytic leukaemia
  5. TRETINOIN [Suspect]
     Active Substance: TRETINOIN
     Indication: Acute promyelocytic leukaemia
     Dosage: UNK
     Route: 065
  6. TRETINOIN [Suspect]
     Active Substance: TRETINOIN
     Indication: Chronic lymphocytic leukaemia

REACTIONS (3)
  - Cardio-respiratory arrest [Fatal]
  - Condition aggravated [Unknown]
  - Disseminated intravascular coagulation [Unknown]
